FAERS Safety Report 13526457 (Version 1)
Quarter: 2017Q2

REPORT INFORMATION
  Report Type: Spontaneous
  Country: US (occurrence: US)
  Receive Date: 20170509
  Receipt Date: 20170509
  Transmission Date: 20170830
  Serious: Yes (Other)
  Sender: FDA-Public Use
  Company Number: US-BAYER-2017-080867

PATIENT

DRUGS (1)
  1. CIPRO [Suspect]
     Active Substance: CIPROFLOXACIN HYDROCHLORIDE
     Dosage: UNK
     Dates: start: 200109

REACTIONS (6)
  - Injury [None]
  - Pain [None]
  - Emotional disorder [None]
  - Emotional distress [None]
  - Economic problem [None]
  - Neuropathy peripheral [None]
